FAERS Safety Report 7265439-8 (Version None)
Quarter: 2011Q1

REPORT INFORMATION
  Report Type: 
  Country: None (occurrence: None)
  Receive Date: 20110131
  Receipt Date: 20110119
  Transmission Date: 20110831
  Serious: Yes (Hospitalization)
  Sender: FDA-Public Use
  Company Number: PHHY2011JP04548

PATIENT
  Age: 80 Year
  Sex: Male

DRUGS (24)
  1. FRANDOL [Concomitant]
     Dosage: UNK
  2. BLOPRESS [Concomitant]
     Dosage: UNK
  3. TICLOPIDINE HYDROCHLORIDE [Concomitant]
     Dosage: UNK
  4. PURSENNID [Concomitant]
     Dosage: UNK
  5. JANUVIA [Concomitant]
     Dosage: UNK
  6. ANTIBACTERIALS [Concomitant]
     Dosage: UNK
  7. PRAVASTATIN SODIUM [Concomitant]
     Dosage: UNK
  8. CARDENALIN [Concomitant]
     Dosage: UNK
  9. ARICEPT [Concomitant]
     Dosage: UNK
  10. RASILEZ [Suspect]
     Indication: HYPERTENSION
     Dosage: UNK
     Route: 048
     Dates: start: 20101001
  11. ARTIST [Concomitant]
     Dosage: UNK
  12. DISOPYRAMIDE PHOSPHATE [Concomitant]
     Dosage: UNK
  13. SIGMART [Concomitant]
     Dosage: UNK
  14. PROCYLIN [Concomitant]
     Dosage: UNK
  15. MEIACT [Concomitant]
     Dosage: UNK
  16. ASPIRIN [Concomitant]
     Dosage: UNK
  17. LAC B [Concomitant]
     Dosage: UNK
  18. FERROUS CITRATE [Concomitant]
     Dosage: UNK
  19. CONIEL [Concomitant]
     Dosage: UNK
  20. ZETIA [Concomitant]
     Dosage: UNK
  21. SHAKUYAKUKANZOUTOU [Concomitant]
     Dosage: UNK
  22. MAGNESIUM [Concomitant]
     Dosage: UNK
  23. URINORM [Concomitant]
     Dosage: UNK
  24. TAKEPRON [Concomitant]
     Dosage: UNK

REACTIONS (2)
  - RESPIRATORY FAILURE [None]
  - PNEUMONIA [None]
